FAERS Safety Report 14973991 (Version 1)
Quarter: 2018Q2

REPORT INFORMATION
  Report Type: Spontaneous
  Country: CN (occurrence: CN)
  Receive Date: 20180605
  Receipt Date: 20180605
  Transmission Date: 20180711
  Serious: Yes (Other)
  Sender: FDA-Public Use
  Company Number: CN-ASTRAZENECA-2018SE73550

PATIENT
  Sex: Male

DRUGS (2)
  1. BUDESONIDE. [Suspect]
     Active Substance: BUDESONIDE
     Indication: INFECTION
     Route: 055
     Dates: start: 20180306, end: 20180317
  2. METHYLPREDNISOLONE SODIUM SUCCINATE. [Suspect]
     Active Substance: METHYLPREDNISOLONE SODIUM SUCCINATE
     Indication: INFECTION
     Route: 041
     Dates: start: 20180309, end: 20180314

REACTIONS (1)
  - Blood glucose increased [Unknown]
